FAERS Safety Report 12930249 (Version 1)
Quarter: 2016Q4

REPORT INFORMATION
  Report Type: Spontaneous
  Country: US (occurrence: US)
  Receive Date: 20161110
  Receipt Date: 20161110
  Transmission Date: 20170207
  Serious: Yes (Life-Threatening, Hospitalization)
  Sender: FDA-Public Use
  Company Number: US-JNJFOC-20161107694

PATIENT
  Age: 33 Year
  Sex: Female

DRUGS (1)
  1. INVOKANA [Suspect]
     Active Substance: CANAGLIFLOZIN
     Indication: DIABETES MELLITUS MANAGEMENT
     Route: 065
     Dates: start: 20141113, end: 201412

REACTIONS (5)
  - Acute kidney injury [Unknown]
  - Respiratory failure [Unknown]
  - Diabetic ketoacidosis [Unknown]
  - Pancreatitis [Unknown]
  - Sepsis [Unknown]

NARRATIVE: CASE EVENT DATE: 201412
